FAERS Safety Report 5240544-6 (Version None)
Quarter: 2007Q1

REPORT INFORMATION
  Report Type: 
  Country: None (occurrence: None)
  Receive Date: 20061208
  Receipt Date: 20060424
  Transmission Date: 20070707
  Serious: Yes (Other)
  Sender: FDA-Public Use
  Company Number: 2006UW07306

PATIENT
  Age: 74 Year
  Sex: Male
  Weight: 81.6 kg

DRUGS (8)
  1. CRESTOR [Suspect]
     Indication: HYPERCHOLESTEROLAEMIA
     Dosage: 10 MG QD PO
     Route: 048
     Dates: start: 20050101
  2. HYDROCHLOROTHIAZIDE [Concomitant]
  3. METOPROLOL SUCCINATE [Concomitant]
  4. ASPIRIN [Concomitant]
  5. TEMAZEPAM [Concomitant]
  6. LORTAB [Concomitant]
  7. NEURONTIN [Concomitant]
  8. LYRICA [Concomitant]

REACTIONS (3)
  - EYE OEDEMA [None]
  - MYALGIA [None]
  - PARAESTHESIA [None]
